FAERS Safety Report 9252533 (Version 1)
Quarter: 2013Q1

REPORT INFORMATION
  Report Type: Spontaneous
  Country: US (occurrence: None)
  Receive Date: 20130305
  Receipt Date: 20130305
  Transmission Date: 20140127
  Serious: Yes (Other)
  Sender: FDA-Public Use
  Company Number: 163-21880-12083258

PATIENT
  Sex: Male

DRUGS (4)
  1. REVLIMID ( LENALIDOMIDE) (5 MILLIGRAM, CAPSULES) [Suspect]
     Indication: PLASMA CELL MYELOMA
     Dosage: 5 MG, 21 IN 21 D, PO
     Route: 048
     Dates: start: 20110306
  2. MULTIVITAL (ALL OTHER THERAPEUTIC PRODUCTS) (UNKNOWN) [Concomitant]
  3. VITAMIN B COMPLEX (B-KOMPLEX ^LECIVA^) (UNKNOWN) [Concomitant]
  4. CALCIUM 600 (UNKNOWN) [Concomitant]
     Dosage: 600, UNK

REACTIONS (1)
  - Pyrexia [None]
